FAERS Safety Report 11289347 (Version 1)
Quarter: 2015Q3

REPORT INFORMATION
  Report Type: Report from Study
  Country: KE (occurrence: KE)
  Receive Date: 20150721
  Receipt Date: 20150721
  Transmission Date: 20151125
  Serious: Yes (Other)
  Sender: FDA-Public Use
  Company Number: KE-MYLANLABS-2015M1024140

PATIENT

DRUGS (3)
  1. LAMIVUDINE W/NEVIRAPINE/STAVUDINE [Suspect]
     Active Substance: LAMIVUDINE\NEVIRAPINE\STAVUDINE
     Indication: HIV INFECTION
     Dosage: UNK
     Dates: start: 20130114
  2. EFAVIRENZ W/LAMIVUDINE/STAVUDINE [Suspect]
     Active Substance: EFAVIRENZ\LAMIVUDINE\STAVUDINE
     Indication: HIV INFECTION
     Dosage: UNK
     Dates: start: 20130925
  3. LAMIVUDINE/NEVIRAPINE/ZIDOVUDINE [Suspect]
     Active Substance: LAMIVUDINE\NEVIRAPINE\ZIDOVUDINE
     Indication: HIV INFECTION
     Dosage: UNK
     Dates: start: 20140313

REACTIONS (2)
  - Abortion spontaneous [Recovered/Resolved]
  - Exposure during pregnancy [Recovered/Resolved]

NARRATIVE: CASE EVENT DATE: 20140812
